FAERS Safety Report 24315151 (Version 3)
Quarter: 2025Q3

REPORT INFORMATION
  Report Type: Report from Study
  Country: US (occurrence: US)
  Receive Date: 20240913
  Receipt Date: 20250810
  Transmission Date: 20251020
  Serious: No
  Sender: ALEXION PHARMACEUTICALS
  Company Number: US-AstraZeneca-CH-00703476A

PATIENT
  Sex: Female

DRUGS (3)
  1. ULTOMIRIS [Suspect]
     Active Substance: RAVULIZUMAB-CWVZ
     Route: 065
  2. BENADRYL [Suspect]
     Active Substance: DIPHENHYDRAMINE HYDROCHLORIDE
     Route: 065
  3. PREDNISONE [Suspect]
     Active Substance: PREDNISONE
     Route: 065

REACTIONS (6)
  - Feeling abnormal [Not Recovered/Not Resolved]
  - Laziness [Recovering/Resolving]
  - Dysarthria [Recovering/Resolving]
  - Somnolence [Recovering/Resolving]
  - Fatigue [Recovering/Resolving]
  - Asthenia [Not Recovered/Not Resolved]
